FAERS Safety Report 8580851-2 (Version None)
Quarter: 2012Q3

REPORT INFORMATION
  Report Type: 
  Country: None (occurrence: None)
  Receive Date: 20120726
  Receipt Date: 20120628
  Transmission Date: 20120928
  Serious: Yes (Hospitalization)
  Sender: FDA-Public Use
  Company Number: 1339506

PATIENT
  Age: 58 Year
  Sex: Male
  Weight: 69 kg

DRUGS (3)
  1. FLUOROURACIL [Suspect]
     Indication: GASTRIC CANCER
     Dosage: 6790 MG MILLIGRAM(S), INTRAVENOUS
     Route: 042
     Dates: start: 20120313, end: 20120313
  2. DOCETAXEL [Suspect]
     Indication: GASTRIC CANCER
     Dosage: 136 MG MILLIGRAM(S), INTRAVENOUS
     Route: 042
     Dates: start: 20120313, end: 20120313
  3. CISPLATIN [Suspect]
     Indication: GASTRIC CANCER
     Dosage: 136 MG MILLIGRAM(S), INTRAVENOUS
     Route: 042
     Dates: start: 20120313, end: 20120313

REACTIONS (5)
  - CAECITIS [None]
  - GASTRIC CANCER [None]
  - NEUTROPENIA [None]
  - NEOPLASM PROGRESSION [None]
  - WHITE BLOOD CELL COUNT DECREASED [None]
